FAERS Safety Report 7503266-4 (Version None)
Quarter: 2011Q2

REPORT INFORMATION
  Report Type: 
  Country: None (occurrence: None)
  Receive Date: 20110518
  Receipt Date: 20110518
  Transmission Date: 20111010
  Serious: Yes (Death, Disabling)
  Sender: FDA-Public Use
  Company Number: 1-21330934

PATIENT
  Age: 50 Year
  Sex: Male
  Weight: 88.4514 kg

DRUGS (1)
  1. FENTANYL-25 [Suspect]
     Indication: BACK PAIN
     Dosage: 1-2 PATCHES Q 72HRS, TRANSDERMAL
     Route: 062
     Dates: start: 20080102, end: 20080106

REACTIONS (12)
  - ANXIETY [None]
  - TOXICITY TO VARIOUS AGENTS [None]
  - PERIPHERAL COLDNESS [None]
  - ACCIDENTAL DEATH [None]
  - DEFORMITY [None]
  - PULSE ABSENT [None]
  - LIVIDITY [None]
  - ALCOHOL USE [None]
  - APNOEIC ATTACK [None]
  - OVERDOSE [None]
  - MENTAL IMPAIRMENT [None]
  - UNRESPONSIVE TO STIMULI [None]
